FAERS Safety Report 18778599 (Version 2)
Quarter: 2021Q3

REPORT INFORMATION
  Report Type: Spontaneous
  Country: US (occurrence: US)
  Receive Date: 20210124
  Receipt Date: 20210715
  Transmission Date: 20211014
  Serious: Yes (Other)
  Sender: FDA-Public Use
  Company Number: US-TEVA-2021-US-1869966

PATIENT
  Age: 43 Year
  Sex: Female

DRUGS (6)
  1. NIVOLUMAB [Concomitant]
     Active Substance: NIVOLUMAB
     Indication: METASTATIC GASTRIC CANCER
     Dosage: 4 CYCLES
     Route: 065
     Dates: start: 202002
  2. FOLINIC ACID [Suspect]
     Active Substance: LEUCOVORIN
     Indication: ADENOCARCINOMA GASTRIC
     Dosage: AS A PART OF FLOT REGIMEN
     Route: 065
     Dates: start: 2018, end: 2018
  3. DOCETAXEL. [Suspect]
     Active Substance: DOCETAXEL
     Indication: ADENOCARCINOMA GASTRIC
     Dosage: AS A PART OF FLOT REGIMEN
     Route: 065
     Dates: start: 2018, end: 2018
  4. FLUOROURACIL. [Suspect]
     Active Substance: FLUOROURACIL
     Indication: ADENOCARCINOMA GASTRIC
     Dosage: AS A PART OF FLOT REGIMEN
     Route: 065
     Dates: start: 2018, end: 2018
  5. OXALIPLATIN. [Suspect]
     Active Substance: OXALIPLATIN
     Indication: ADENOCARCINOMA GASTRIC
     Dosage: AS A PART OF FLOT REGIMEN
     Route: 065
     Dates: start: 2018, end: 2018
  6. CETUXIMAB. [Suspect]
     Active Substance: CETUXIMAB
     Indication: METASTATIC GASTRIC CANCER
     Route: 065
     Dates: start: 202002

REACTIONS (7)
  - Vomiting [Unknown]
  - Rash [Unknown]
  - Nausea [Unknown]
  - Neuropathy peripheral [Unknown]
  - Alopecia [Unknown]
  - Fatigue [Unknown]
  - Pustule [Unknown]

NARRATIVE: CASE EVENT DATE: 2018
